FAERS Safety Report 21164102 (Version 1)
Quarter: 2022Q3

REPORT INFORMATION
  Report Type: Spontaneous
  Country: DE (occurrence: None)
  Receive Date: 20220803
  Receipt Date: 20220803
  Transmission Date: 20221027
  Serious: Yes (Other)
  Sender: FDA-Public Use
  Company Number: DE-ROCHE-3150344

PATIENT
  Sex: Male

DRUGS (2)
  1. ERIVEDGE [Suspect]
     Active Substance: VISMODEGIB
     Indication: Basal cell carcinoma
     Route: 065
     Dates: start: 2019
  2. LIBTAYO [Suspect]
     Active Substance: CEMIPLIMAB-RWLC
     Indication: Basal cell carcinoma
     Route: 065

REACTIONS (3)
  - Disease progression [Not Recovered/Not Resolved]
  - Central nervous system infection [Not Recovered/Not Resolved]
  - Drug ineffective [Not Recovered/Not Resolved]
